FAERS Safety Report 7031101-X (Version None)
Quarter: 2010Q4

REPORT INFORMATION
  Report Type: 
  Country: None (occurrence: None)
  Receive Date: 20101001
  Receipt Date: 20100924
  Transmission Date: 20110411
  Serious: Yes (Other)
  Sender: FDA-Public Use
  Company Number: A-CH2010-35290

PATIENT
  Sex: Male

DRUGS (4)
  1. ZAVESCA [Suspect]
     Indication: NIEMANN-PICK DISEASE
     Dosage: 200 MG, TID, ORAL, 500 MG, QD, ORAL
     Route: 048
     Dates: start: 20090301, end: 20100401
  2. ZAVESCA [Suspect]
     Indication: NIEMANN-PICK DISEASE
     Dosage: 200 MG, TID, ORAL, 500 MG, QD, ORAL
     Route: 048
     Dates: start: 20100501
  3. LAMOTRIGINE [Concomitant]
  4. CARBAMAZEPINE [Concomitant]

REACTIONS (2)
  - ASTHENIA [None]
  - HYPOGLYCAEMIA [None]
